FAERS Safety Report 21779070 (Version 1)
Quarter: 2022Q4

REPORT INFORMATION
  Report Type: Spontaneous
  Country: JP (occurrence: JP)
  Receive Date: 20221226
  Receipt Date: 20221226
  Transmission Date: 20230112
  Serious: Yes (Death)
  Sender: FDA-Public Use
  Company Number: JP-ACTELION-A-CH2019-195104

PATIENT
  Age: 69 Year
  Sex: Male

DRUGS (5)
  1. UPTRAVI [Suspect]
     Active Substance: SELEXIPAG
     Indication: Pulmonary arterial hypertension
     Dosage: UNK?THERAPY END DATE: //2019
     Route: 048
     Dates: start: 20190611
  2. UPTRAVI [Suspect]
     Active Substance: SELEXIPAG
     Indication: Pulmonary arterial hypertension
     Dosage: 1.2 MG, QD?THERAPY START DATE: //2019, THERAPY END DATE: //2019
     Route: 048
  3. UPTRAVI [Suspect]
     Active Substance: SELEXIPAG
     Route: 048
     Dates: start: 20190611, end: 20190711
  4. UPTRAVI [Suspect]
     Active Substance: SELEXIPAG
     Route: 048
     Dates: start: 20190712, end: 20190721
  5. UPTRAVI [Suspect]
     Active Substance: SELEXIPAG
     Route: 048
     Dates: start: 20190722, end: 20190825

REACTIONS (2)
  - Pneumonia [Fatal]
  - Condition aggravated [Fatal]

NARRATIVE: CASE EVENT DATE: 20190101
